FAERS Safety Report 7648118-4 (Version None)
Quarter: 2011Q3

REPORT INFORMATION
  Report Type: 
  Country: None (occurrence: None)
  Receive Date: 20110801
  Receipt Date: 20110719
  Transmission Date: 20111222
  Serious: Yes (Other)
  Sender: FDA-Public Use
  Company Number: JP-ASTRAZENECA-2011SE36720

PATIENT
  Age: 33776 Day
  Sex: Female

DRUGS (12)
  1. WYSTAL [Suspect]
     Indication: BACTERAEMIA
     Route: 042
     Dates: start: 20110418, end: 20110501
  2. DAI-KENCHU-TO [Concomitant]
     Indication: CONSTIPATION
     Route: 048
  3. LANSOPRAZOLE [Concomitant]
     Indication: GASTROOESOPHAGEAL REFLUX DISEASE
     Route: 048
  4. PENTAZOCINE LACTATE [Concomitant]
     Indication: PAIN
     Route: 042
     Dates: start: 20110418, end: 20110418
  5. MEROPENEM [Suspect]
     Indication: CHOLECYSTITIS
     Route: 042
     Dates: start: 20110502, end: 20110517
  6. IMMUNE GLOBULIN INTRAVENOUS (HUMAN) [Concomitant]
     Indication: BACTERAEMIA
     Route: 042
     Dates: start: 20110418, end: 20110419
  7. ROHYPNOL [Concomitant]
     Indication: INSOMNIA
     Route: 042
     Dates: start: 20110418, end: 20110420
  8. METHYLPREDNISOLONE SODIUM SUCCINATE [Concomitant]
     Indication: SHOCK
     Route: 042
     Dates: start: 20110418, end: 20110418
  9. WYSTAL [Suspect]
     Indication: CHOLECYSTITIS
     Route: 042
     Dates: start: 20110418, end: 20110501
  10. ARICEPT [Concomitant]
     Indication: DEMENTIA
     Route: 048
  11. GASLON N OD [Concomitant]
     Indication: GASTRITIS
     Route: 048
  12. FLURBIPROFEN [Concomitant]
     Indication: ANTIPYRESIS
     Route: 042
     Dates: start: 20110419, end: 20110502

REACTIONS (1)
  - INTERSTITIAL LUNG DISEASE [None]
